FAERS Safety Report 15934847 (Version 2)
Quarter: 2019Q2

REPORT INFORMATION
  Report Type: Spontaneous
  Country: US (occurrence: US)
  Receive Date: 20190207
  Receipt Date: 20190424
  Transmission Date: 20190711
  Serious: No
  Sender: FDA-Public Use
  Company Number: US-BAUSCH-BL-2019-002497

PATIENT
  Age: 72 Year
  Sex: Female
  Weight: 53.57 kg

DRUGS (2)
  1. EFUDEX [Suspect]
     Active Substance: FLUOROURACIL
     Route: 061
     Dates: start: 2018, end: 2018
  2. EFUDEX [Suspect]
     Active Substance: FLUOROURACIL
     Indication: BASOSQUAMOUS CARCINOMA
     Route: 061
     Dates: start: 20180220, end: 2018

REACTIONS (2)
  - Inappropriate schedule of product administration [Unknown]
  - Eczema [Not Recovered/Not Resolved]

NARRATIVE: CASE EVENT DATE: 20180220
